FAERS Safety Report 21424871 (Version 2)
Quarter: 2022Q4

REPORT INFORMATION
  Report Type: Spontaneous
  Country: US (occurrence: US)
  Receive Date: 20221008
  Receipt Date: 20221020
  Transmission Date: 20230112
  Serious: No
  Sender: FDA-Public Use
  Company Number: US-BRISTOL-MYERS SQUIBB COMPANY-2022-116018

PATIENT
  Age: 70 Year
  Sex: Male

DRUGS (1)
  1. POMALYST [Suspect]
     Active Substance: POMALIDOMIDE
     Indication: Kaposi^s sarcoma
     Dosage: 21 DAYS ON, THEN 7 DAYS OFF
     Route: 048

REACTIONS (8)
  - Fatigue [Unknown]
  - Asthenia [Unknown]
  - Decreased appetite [Unknown]
  - Pollakiuria [Unknown]
  - Rash erythematous [Unknown]
  - Chromaturia [Unknown]
  - Urine odour abnormal [Unknown]
  - Micturition urgency [Unknown]
